FAERS Safety Report 9192707 (Version 2)
Quarter: 2014Q1

REPORT INFORMATION
  Report Type: Report from Study
  Country: US (occurrence: US)
  Receive Date: 20130327
  Receipt Date: 20140108
  Transmission Date: 20141002
  Serious: Yes (Other)
  Sender: FDA-Public Use
  Company Number: US-NAPPMUNDI-USA-2013-0100111

PATIENT
  Age: 66 Year
  Sex: Male

DRUGS (1)
  1. OXYCONTIN (NDA 22-272) [Suspect]
     Indication: PRODUCT USED FOR UNKNOWN INDICATION
     Dosage: 80 MG, BID
     Route: 048

REACTIONS (5)
  - Hernia repair [Recovered/Resolved]
  - Testicular disorder [Unknown]
  - Insomnia [Not Recovered/Not Resolved]
  - Unevaluable event [Unknown]
  - Drug effect decreased [Unknown]
